FAERS Safety Report 26217224 (Version 1)
Quarter: 2025Q4

REPORT INFORMATION
  Report Type: Spontaneous
  Country: CN (occurrence: CN)
  Receive Date: 20251231
  Receipt Date: 20251231
  Transmission Date: 20260117
  Serious: Yes (Other)
  Sender: CSL BEHRING
  Company Number: CN-BEH-2025210828

PATIENT
  Age: 77 Year
  Sex: Male
  Weight: 75 kg

DRUGS (1)
  1. ALBURX [Suspect]
     Active Substance: ALBUMIN HUMAN
     Indication: Hypoproteinaemia
     Dosage: 20 G, OD
     Route: 041
     Dates: start: 20250619, end: 20250619

REACTIONS (15)
  - Anaphylactic shock [Recovering/Resolving]
  - Oxygen saturation decreased [Recovering/Resolving]
  - Pulmonary oedema [Recovering/Resolving]
  - Bronchospasm [Recovering/Resolving]
  - Hypertension [Recovering/Resolving]
  - Dyspnoea [Recovered/Resolved]
  - Flushing [Recovering/Resolving]
  - Hyperaemia [Recovering/Resolving]
  - Wheezing [Recovering/Resolving]
  - Heart rate increased [Recovering/Resolving]
  - Rash [Recovered/Resolved]
  - Urticaria [Recovering/Resolving]
  - Respiratory disorder [Recovering/Resolving]
  - Chest discomfort [Recovered/Resolved]
  - Respiratory rate increased [Recovering/Resolving]

NARRATIVE: CASE EVENT DATE: 20250619
